FAERS Safety Report 5171710-6 (Version None)
Quarter: 2006Q4

REPORT INFORMATION
  Report Type: 
  Country: None (occurrence: None)
  Receive Date: 20061213
  Receipt Date: 20061206
  Transmission Date: 20070319
  Serious: Yes (Other)
  Sender: FDA-Public Use
  Company Number: BW-BRISTOL-MYERS SQUIBB COMPANY-13603568

PATIENT
  Age: 54 Year
  Sex: Female

DRUGS (5)
  1. STAVUDINE [Suspect]
     Indication: HIV INFECTION
     Dates: start: 20041122
  2. EFAVIRENZ [Suspect]
     Indication: HIV INFECTION
     Dates: start: 20041122
  3. LAMIVUDINE [Suspect]
     Indication: HIV INFECTION
     Dates: start: 20041122
  4. BENDROFLUMETHIAZIDE [Concomitant]
  5. ATENOLOL [Concomitant]

REACTIONS (3)
  - HYPERCHOLESTEROLAEMIA [None]
  - HYPERTENSION [None]
  - LIPODYSTROPHY ACQUIRED [None]
